FAERS Safety Report 18471292 (Version 1)
Quarter: 2020Q4

REPORT INFORMATION
  Report Type: Spontaneous
  Country: US (occurrence: US)
  Receive Date: 20201105
  Receipt Date: 20201105
  Transmission Date: 20210114
  Serious: Yes (Death, Other)
  Sender: FDA-Public Use
  Company Number: US-PURDUE-USA-2020-0168986

PATIENT
  Sex: Male

DRUGS (2)
  1. OXYCONTIN [Suspect]
     Active Substance: OXYCODONE HYDROCHLORIDE
     Indication: BACK PAIN
     Dosage: 20 MG, TID
     Route: 048
     Dates: start: 2007
  2. OXYCONTIN [Suspect]
     Active Substance: OXYCODONE HYDROCHLORIDE
     Dosage: 80 MG, TID
     Route: 048

REACTIONS (6)
  - Completed suicide [Fatal]
  - Depression [Unknown]
  - Overdose [Unknown]
  - Drug dependence [Unknown]
  - Product prescribing issue [Unknown]
  - Asthenia [Unknown]

NARRATIVE: CASE EVENT DATE: 20190501
